FAERS Safety Report 8123547-3 (Version None)
Quarter: 2012Q1

REPORT INFORMATION
  Report Type: 
  Country: None (occurrence: None)
  Receive Date: 20120208
  Receipt Date: 20120201
  Transmission Date: 20120608
  Serious: Yes (Hospitalization, Other)
  Sender: FDA-Public Use
  Company Number: PHHY2012BR009280

PATIENT
  Age: 84 Year
  Sex: Female

DRUGS (2)
  1. BUDESONIDE [Suspect]
     Indication: CHRONIC OBSTRUCTIVE PULMONARY DISEASE
     Dosage: 2 INHALATIONS IN THE MORNING AND 1 INHALATION AT NIGHT
  2. FORADIL [Suspect]
     Indication: CHRONIC OBSTRUCTIVE PULMONARY DISEASE
     Dosage: 1 INHALATION IN THE MORNING AND 1 INHALATION AT NIGHT

REACTIONS (4)
  - OEDEMA PERIPHERAL [None]
  - GAIT DISTURBANCE [None]
  - BEDRIDDEN [None]
  - BONE PAIN [None]
